FAERS Safety Report 10577478 (Version 1)
Quarter: 2014Q4

REPORT INFORMATION
  Report Type: Report from Study
  Country: DK (occurrence: DE)
  Receive Date: 20141111
  Receipt Date: 20141111
  Transmission Date: 20150529
  Serious: Yes (Other)
  Sender: FDA-Public Use
  Company Number: DE-FRI-1000072178

PATIENT
  Sex: Female

DRUGS (21)
  1. QUETIAPINE [Interacting]
     Active Substance: QUETIAPINE
     Dosage: 300 MG
     Route: 048
     Dates: start: 20130722, end: 20130725
  2. KEPPRA [Concomitant]
     Active Substance: LEVETIRACETAM
     Dosage: 2000 MG
     Route: 048
  3. ISENTRESS [Concomitant]
     Active Substance: RALTEGRAVIR POTASSIUM
     Dosage: 800 MG
     Route: 048
  4. FLUCONAZOL [Concomitant]
     Active Substance: FLUCONAZOLE
     Dosage: 85.7143 MG
     Route: 048
  5. CITALOPRAM [Interacting]
     Active Substance: CITALOPRAM HYDROBROMIDE
     Dosage: 30 MG
     Route: 048
     Dates: start: 20131029, end: 20131030
  6. QUETIAPIN RETARD [Interacting]
     Active Substance: QUETIAPINE
     Dosage: 200 MG
     Route: 048
     Dates: start: 20130827, end: 20130908
  7. ELONTRIL [Concomitant]
     Active Substance: BUPROPION HYDROCHLORIDE
     Dosage: 300 MG
     Route: 048
     Dates: start: 20130711
  8. QUETIAPIN RETARD [Interacting]
     Active Substance: QUETIAPINE
     Dosage: 100 MG
     Route: 048
     Dates: start: 20130722, end: 20130728
  9. QUETIAPINE [Interacting]
     Active Substance: QUETIAPINE
     Dosage: 200 MG
     Route: 048
     Dates: start: 20130726, end: 20130819
  10. MOVICOL [Concomitant]
     Active Substance: POLYETHYLENE GLYCOL 3350\POTASSIUM CHLORIDE\SODIUM BICARBONATE\SODIUM CHLORIDE
     Dosage: 1 DF DOSAGE FORM
     Route: 048
  11. CITALOPRAM [Suspect]
     Active Substance: CITALOPRAM HYDROBROMIDE
     Dosage: 40 MG
     Route: 048
     Dates: start: 20130820, end: 20131028
  12. CARBIMAZOL [Concomitant]
     Dosage: 5 MG
     Route: 048
  13. QUETIAPIN RETARD [Interacting]
     Active Substance: QUETIAPINE
     Dosage: 400 MG
     Route: 048
     Dates: start: 20130909, end: 20131013
  14. RITONAVIR. [Interacting]
     Active Substance: RITONAVIR
     Dosage: 100 MG
     Route: 048
  15. ZOPICLON [Concomitant]
     Active Substance: ZOPICLONE
     Dosage: 15 MG
     Route: 048
  16. QUETIAPINE [Interacting]
     Active Substance: QUETIAPINE
     Dosage: 200 MG
     Route: 048
     Dates: end: 20130721
  17. PREZISTA [Interacting]
     Active Substance: DARUNAVIR ETHANOLATE
     Dosage: 800 MG
     Route: 048
  18. PANTOPRAZOLE [Concomitant]
     Active Substance: PANTOPRAZOLE SODIUM
     Dosage: 40 MG
     Route: 048
  19. QUETIAPIN RETARD [Interacting]
     Active Substance: QUETIAPINE
     Dosage: 200 MG
     Route: 048
     Dates: start: 20130729, end: 20130818
  20. QUETIAPIN RETARD [Interacting]
     Active Substance: QUETIAPINE
     Dosage: 300 MG
     Route: 048
     Dates: start: 20130819, end: 20130826
  21. QUETIAPINE [Interacting]
     Active Substance: QUETIAPINE
     Dosage: 50 MG
     Route: 048
     Dates: start: 20130924, end: 20131016

REACTIONS (3)
  - Potentiating drug interaction [Recovering/Resolving]
  - Tardive dyskinesia [Recovering/Resolving]
  - Drug level above therapeutic [Recovering/Resolving]

NARRATIVE: CASE EVENT DATE: 20131021
